FAERS Safety Report 21796217 (Version 1)
Quarter: 2022Q4

REPORT INFORMATION
  Report Type: Spontaneous
  Country: US (occurrence: US)
  Receive Date: 20221229
  Receipt Date: 20221229
  Transmission Date: 20230113
  Serious: Yes (Death)
  Sender: FDA-Public Use
  Company Number: US-PFIZER INC-PV202200124674

PATIENT
  Age: 49 Year
  Sex: Male

DRUGS (8)
  1. MEKTOVI [Suspect]
     Active Substance: BINIMETINIB
     Indication: Non-small cell lung cancer
     Dosage: 45 MG
  2. MEKTOVI [Suspect]
     Active Substance: BINIMETINIB
     Indication: Lung neoplasm malignant
  3. MEKTOVI [Suspect]
     Active Substance: BINIMETINIB
     Indication: Metastases to bone
  4. MEKTOVI [Suspect]
     Active Substance: BINIMETINIB
     Indication: Bronchial carcinoma
  5. BRAFTOVI [Suspect]
     Active Substance: ENCORAFENIB
     Indication: Non-small cell lung cancer
     Dosage: 450 MG, DAILY (450 MG PER DAY/6 CAPSULES)
  6. BRAFTOVI [Suspect]
     Active Substance: ENCORAFENIB
     Indication: Lung neoplasm malignant
  7. BRAFTOVI [Suspect]
     Active Substance: ENCORAFENIB
     Indication: Metastases to bone
  8. BRAFTOVI [Suspect]
     Active Substance: ENCORAFENIB
     Indication: Bronchial carcinoma

REACTIONS (2)
  - Death [Fatal]
  - Off label use [Unknown]
